FAERS Safety Report 8581057-3 (Version None)
Quarter: 2012Q3

REPORT INFORMATION
  Report Type: 
  Country: None (occurrence: None)
  Receive Date: 20120809
  Receipt Date: 20120730
  Transmission Date: 20120928
  Serious: Yes (Hospitalization, Other)
  Sender: FDA-Public Use
  Company Number: US-BAYER-2012-011105

PATIENT
  Age: 23 Year
  Sex: Female
  Weight: 95.238 kg

DRUGS (13)
  1. TORADOL [Concomitant]
     Dosage: 15 MG, UNK
     Dates: start: 20100218
  2. MORPHINE [Concomitant]
     Dosage: 10 MG, UNK
     Route: 030
     Dates: start: 20100219
  3. YAZ [Suspect]
     Indication: CONTRACEPTION
     Dosage: 1 DF, QD
     Route: 048
     Dates: start: 20091207, end: 20100221
  4. YASMIN [Suspect]
     Dosage: UNK
     Dates: start: 20091207, end: 20100221
  5. SKELAXIN [Concomitant]
  6. BENTYL [Concomitant]
     Dosage: 20 MG, PRN
     Dates: start: 20100218
  7. SYMPATHOMIMETICS [Concomitant]
     Dosage: UNK UNK, PRN
     Dates: start: 20091228
  8. MEDROL [Concomitant]
     Dosage: UNK
     Dates: start: 20100220
  9. MOTRIN [Concomitant]
  10. DICYCLOMINE [Concomitant]
     Dosage: 20 MG, QD
  11. AMOXICILLIN [Concomitant]
     Dosage: 875 MG, BID
     Dates: start: 20091228
  12. NASONEX [Concomitant]
  13. FLEXERIL [Concomitant]
     Dosage: 10 MG, QD
     Dates: start: 20100218

REACTIONS (7)
  - PSYCHOLOGICAL TRAUMA [None]
  - ANXIETY [None]
  - INJURY [None]
  - PAIN IN EXTREMITY [None]
  - EMOTIONAL DISTRESS [None]
  - DEEP VEIN THROMBOSIS [None]
  - PAIN [None]
